FAERS Safety Report 9145782 (Version 20)
Quarter: 2019Q1

REPORT INFORMATION
  Report Type: Report from Study
  Country: CA (occurrence: CA)
  Receive Date: 20130307
  Receipt Date: 20190304
  Transmission Date: 20190418
  Serious: Yes (Death, Other)
  Sender: FDA-Public Use
  Company Number: PHHY2013CA010458

PATIENT
  Age: 54 Year
  Sex: Male

DRUGS (17)
  1. SANDOSTATIN LAR DEPOT [Suspect]
     Active Substance: OCTREOTIDE ACETATE
     Dosage: 60 MG, QMO
     Route: 030
     Dates: start: 20140512
  2. SANDOSTATIN LAR DEPOT [Suspect]
     Active Substance: OCTREOTIDE ACETATE
     Dosage: 30 MG, EVERY 2 WEEKS
     Route: 030
     Dates: start: 20151002
  3. SANDOSTATIN LAR DEPOT [Suspect]
     Active Substance: OCTREOTIDE ACETATE
     Dosage: 30 MG, EVERY 2 WEEKS
     Route: 030
     Dates: start: 20180821
  4. SANDOSTATIN [Suspect]
     Active Substance: OCTREOTIDE ACETATE
     Dosage: 100 UG, Q8H (EVERY 8 HOURS)
     Route: 058
     Dates: start: 201612
  5. SANDOSTATIN LAR DEPOT [Suspect]
     Active Substance: OCTREOTIDE ACETATE
     Dosage: 20 MG, (EVERY 2 WEEKS)
     Route: 030
     Dates: start: 20121218
  6. SANDOSTATIN [Suspect]
     Active Substance: OCTREOTIDE ACETATE
     Indication: NEUROENDOCRINE TUMOUR
     Dosage: ONCE/SINGLE (TEST DOSE), QD
     Route: 058
     Dates: start: 20120921, end: 20120921
  7. SANDOSTATIN LAR DEPOT [Suspect]
     Active Substance: OCTREOTIDE ACETATE
     Dosage: 60 MG, (EVERY 14 DAYS/EVERY OTHER WEEK)
     Route: 030
     Dates: start: 20141121
  8. SANDOSTATIN LAR DEPOT [Suspect]
     Active Substance: OCTREOTIDE ACETATE
     Dosage: 60 MG, Q2W (EVERY 2 WEEKS)
     Route: 030
  9. SANDOSTATIN LAR DEPOT [Suspect]
     Active Substance: OCTREOTIDE ACETATE
     Dosage: 30 MG, QMO
     Route: 030
     Dates: start: 20130301
  10. SANDOSTATIN LAR DEPOT [Suspect]
     Active Substance: OCTREOTIDE ACETATE
     Dosage: 60 MG (EVERY OTHER WEEK)
     Route: 030
     Dates: start: 20150501
  11. SANDOSTATIN LAR DEPOT [Suspect]
     Active Substance: OCTREOTIDE ACETATE
     Dosage: 60 MG (EVERY 2 WEEKS)
     Route: 030
     Dates: start: 20151008
  12. SANDOSTATIN [Suspect]
     Active Substance: OCTREOTIDE ACETATE
     Dosage: UNK, BID
     Route: 058
     Dates: start: 20120923
  13. SANDOSTATIN LAR DEPOT [Suspect]
     Active Substance: OCTREOTIDE ACETATE
     Indication: NEUROENDOCRINE TUMOUR
     Dosage: 60 MG, (EVERY 2 WEEKS)
     Route: 030
     Dates: start: 20121016
  14. VITAMIIN C [Concomitant]
     Active Substance: ASCORBIC ACID
     Indication: PRODUCT USED FOR UNKNOWN INDICATION
     Dosage: 2 DF, BIW (2 IVS TWICE A WEEK)
     Route: 042
  15. SANDOSTATIN LAR DEPOT [Suspect]
     Active Substance: OCTREOTIDE ACETATE
     Dosage: 60 MG, QMO
     Route: 030
     Dates: start: 20130405
  16. SANDOSTATIN LAR DEPOT [Suspect]
     Active Substance: OCTREOTIDE ACETATE
     Dosage: 60 MG (EVERY 2 WEEKS)
     Route: 030
  17. SANDOSTATIN LAR DEPOT [Suspect]
     Active Substance: OCTREOTIDE ACETATE
     Dosage: 30 MG, QMO
     Route: 030
     Dates: start: 20130917

REACTIONS (37)
  - Arthralgia [Not Recovered/Not Resolved]
  - Blood pressure diastolic decreased [Unknown]
  - Listless [Unknown]
  - Pulmonary oedema [Unknown]
  - Hypophagia [Not Recovered/Not Resolved]
  - Blood pressure increased [Unknown]
  - Blood urine present [Unknown]
  - Pericardial effusion [Unknown]
  - Peripheral swelling [Unknown]
  - Pollakiuria [Unknown]
  - Asthenia [Unknown]
  - Syncope [Not Recovered/Not Resolved]
  - Ascites [Unknown]
  - Malignant neoplasm progression [Unknown]
  - Blood pressure systolic decreased [Unknown]
  - Insomnia [Unknown]
  - Diarrhoea [Not Recovered/Not Resolved]
  - Oedema [Unknown]
  - Dizziness [Not Recovered/Not Resolved]
  - Abdominal pain lower [Unknown]
  - Abdominal distension [Unknown]
  - Syringe issue [Unknown]
  - Death [Fatal]
  - Joint swelling [Not Recovered/Not Resolved]
  - Oedema peripheral [Unknown]
  - Heart rate decreased [Unknown]
  - Underdose [Unknown]
  - Neuroendocrine tumour [Unknown]
  - Blood pressure systolic increased [Unknown]
  - Weight decreased [Unknown]
  - Dyspnoea [Unknown]
  - Loss of consciousness [Unknown]
  - Serum serotonin increased [Unknown]
  - Pallor [Not Recovered/Not Resolved]
  - Somnolence [Unknown]
  - Needle issue [Unknown]
  - Inappropriate schedule of product administration [Unknown]

NARRATIVE: CASE EVENT DATE: 20140227
